FAERS Safety Report 14394508 (Version 1)
Quarter: 2018Q1

REPORT INFORMATION
  Report Type: Spontaneous
  Country: US (occurrence: US)
  Receive Date: 20180116
  Receipt Date: 20180116
  Transmission Date: 20180509
  Serious: Yes (Other)
  Sender: FDA-Public Use
  Company Number: US-PURDUE-USA-2017-0141759

PATIENT
  Age: 33 Year
  Sex: Male

DRUGS (6)
  1. MARIJUANA [Suspect]
     Active Substance: CANNABIS SATIVA SUBSP. INDICA TOP
     Indication: PAIN
     Route: 055
  2. ALCOHOL. [Suspect]
     Active Substance: ALCOHOL
     Indication: PAIN
     Route: 048
  3. AMBIEN [Concomitant]
     Active Substance: ZOLPIDEM TARTRATE
     Indication: PRODUCT USED FOR UNKNOWN INDICATION
     Route: 048
  4. HYDROCODONE BITARTRATE AND ACETAMINOPHEN [Suspect]
     Active Substance: ACETAMINOPHEN\HYDROCODONE BITARTRATE
     Indication: ARTHRALGIA
     Dosage: 240 TABLET, MONTHLY
     Route: 048
  5. HYDROCODONE BITARTRATE AND ACETAMINOPHEN [Suspect]
     Active Substance: ACETAMINOPHEN\HYDROCODONE BITARTRATE
     Indication: BACK PAIN
     Dosage: 8 TABLET, DAILY
     Route: 048
     Dates: start: 2014
  6. COCAINE [Suspect]
     Active Substance: COCAINE
     Indication: STRESS
     Route: 065

REACTIONS (12)
  - Heart rate abnormal [Unknown]
  - Insomnia [Unknown]
  - Depression [Unknown]
  - Drug withdrawal syndrome [Unknown]
  - Substance abuse [Unknown]
  - Pain [Unknown]
  - Drug abuse [Unknown]
  - Stress [Unknown]
  - Hyperhidrosis [Unknown]
  - Hypophagia [Unknown]
  - Muscle twitching [Unknown]
  - Feeling abnormal [Unknown]
